FAERS Safety Report 16805775 (Version 1)
Quarter: 2019Q3

REPORT INFORMATION
  Report Type: Spontaneous
  Country: US (occurrence: US)
  Receive Date: 20190724
  Receipt Date: 20190724
  Transmission Date: 20191005
  Serious: Yes (Life-Threatening, Other)
  Sender: FDA-Public Use
  Company Number: None

PATIENT
  Age: 43 Year
  Sex: Female
  Weight: 47.63 kg

DRUGS (9)
  1. VITAMIN D3 [Concomitant]
     Active Substance: CHOLECALCIFEROL
  2. NEUROSCIENCE KAVINACE + CALM PRT [Concomitant]
  3. CBD OIL [Concomitant]
     Active Substance: CANNABIDIOL\HERBALS
  4. VIT B [Concomitant]
     Active Substance: VITAMIN B
  5. CLONAZEPAM 1 MG [Suspect]
     Active Substance: CLONAZEPAM
     Indication: TORTICOLLIS
     Dosage: ?          QUANTITY:1 MG MILLIGRAM(S);?
     Route: 048
     Dates: start: 20050301
  6. CLONAZEPAM. [Concomitant]
     Active Substance: CLONAZEPAM
  7. BACH FLOWER PASTILLES [Concomitant]
  8. GINGKO [Concomitant]
     Active Substance: GINKGO
  9. BCOMPLEX [Concomitant]

REACTIONS (16)
  - Sleep terror [None]
  - Suicidal ideation [None]
  - Hallucination [None]
  - Photophobia [None]
  - Tremor [None]
  - Anxiety [None]
  - Hyperacusis [None]
  - Impaired work ability [None]
  - Drug withdrawal syndrome [None]
  - Amnesia [None]
  - Balance disorder [None]
  - Anger [None]
  - Confusional state [None]
  - Seizure [None]
  - Mental impairment [None]
  - Depression [None]

NARRATIVE: CASE EVENT DATE: 20190301
